FAERS Safety Report 22791627 (Version 3)
Quarter: 2023Q4

REPORT INFORMATION
  Report Type: Spontaneous
  Country: JP (occurrence: JP)
  Receive Date: 20230807
  Receipt Date: 20231027
  Transmission Date: 20240110
  Serious: Yes (Hospitalization, Other)
  Sender: FDA-Public Use
  Company Number: JP-ONO-2023JP013972

PATIENT
  Age: 8 Decade
  Sex: Male
  Weight: 71 kg

DRUGS (7)
  1. OPDIVO [Suspect]
     Active Substance: NIVOLUMAB
     Indication: Gastric cancer
     Dosage: UNK
     Route: 041
     Dates: start: 20221226, end: 20230417
  2. OXALIPLATIN [Suspect]
     Active Substance: OXALIPLATIN
     Indication: Gastric cancer
     Route: 041
     Dates: start: 20221212, end: 20230417
  3. FLUOROURACIL [Concomitant]
     Active Substance: FLUOROURACIL
     Indication: Gastric cancer
     Dosage: 400 MG/M2, 2400 MG/M2
     Route: 041
     Dates: start: 20221212, end: 20230417
  4. FLUOROURACIL [Concomitant]
     Active Substance: FLUOROURACIL
     Route: 041
     Dates: start: 20230626
  5. LEVOLEUCOVORIN CALCIUM [Concomitant]
     Active Substance: LEVOLEUCOVORIN CALCIUM
     Indication: Gastric cancer
     Route: 041
     Dates: start: 20221212, end: 20230417
  6. LEVOLEUCOVORIN CALCIUM [Concomitant]
     Active Substance: LEVOLEUCOVORIN CALCIUM
     Route: 041
     Dates: start: 20230626
  7. APRINDINE HYDROCHLORIDE [Concomitant]
     Active Substance: APRINDINE HYDROCHLORIDE
     Indication: Gastric cancer
     Dosage: UNK, (LAST ADMINISTRATION DATE: 09 MAY 2023)
     Dates: end: 20230509

REACTIONS (7)
  - Immune-mediated lung disease [Recovered/Resolved]
  - Dermatitis [Unknown]
  - Neuropathy peripheral [Unknown]
  - Ulcer [Unknown]
  - Infection [Unknown]
  - Hyperglycaemia [Unknown]
  - Pneumonia [Unknown]

NARRATIVE: CASE EVENT DATE: 20230501
